FAERS Safety Report 5480929-6 (Version None)
Quarter: 2007Q4

REPORT INFORMATION
  Report Type: 
  Country: None (occurrence: None)
  Receive Date: 20071004
  Receipt Date: 20070919
  Transmission Date: 20080405
  Serious: Yes (Disabling)
  Sender: FDA-Public Use
  Company Number: 8027010

PATIENT
  Age: 70 Year
  Sex: Male
  Weight: 69 kg

DRUGS (5)
  1. KEPPRA [Suspect]
     Indication: MYOCLONUS
     Dosage: 1000  MG 3/D PO
     Route: 048
     Dates: start: 20070401, end: 20070901
  2. ASPIRIN [Suspect]
     Indication: STATUS EPILEPTICUS
     Dosage: 100 MG 1/D PO
     Route: 048
  3. METOPROLOL SUCCINATE [Suspect]
     Dosage: 1.5 DF /D PO
     Route: 048
  4. RAMIPRIL [Suspect]
     Dosage: 2.5 DF 1/D PO
     Route: 048
  5. INEGY. MFR: NOT SPECIFIED [Suspect]

REACTIONS (3)
  - CEREBELLAR SYNDROME [None]
  - MYOCLONUS [None]
  - SLEEP DISORDER [None]
